FAERS Safety Report 8257500-6 (Version None)
Quarter: 2012Q2

REPORT INFORMATION
  Report Type: 
  Country: None (occurrence: None)
  Receive Date: 20120403
  Receipt Date: 20120319
  Transmission Date: 20120825
  Serious: Yes (Hospitalization, Other)
  Sender: FDA-Public Use
  Company Number: DE-CELGENEUS-062-50794-10051368

PATIENT
  Age: 71 Year
  Sex: Female
  Weight: 56.6 kg

DRUGS (21)
  1. TORSEMIDE [Concomitant]
     Dosage: 5 MILLIGRAM
     Route: 065
  2. ACYCLOVIR [Concomitant]
     Dosage: 600
     Route: 065
  3. LERCANIDIPINE [Concomitant]
     Dosage: 10
     Route: 065
  4. METOPROLOL SUCCINATE [Concomitant]
     Dosage: 1 TABLET
     Route: 065
  5. CYTARABINE [Concomitant]
     Route: 041
  6. CYTARABINE [Concomitant]
     Indication: ACUTE MYELOID LEUKAEMIA
     Dosage: 3.08 GRAM
     Route: 041
     Dates: start: 20100414, end: 20100418
  7. PANTOPRAZOLE [Concomitant]
     Dosage: 20
     Route: 065
  8. VIDAZA [Suspect]
     Route: 041
  9. PANTOPRAZOLE [Concomitant]
     Indication: NAUSEA
     Dosage: 40 MILLIGRAM
     Route: 041
     Dates: start: 20100619
  10. LEVOTHYROXINE SODIUM [Concomitant]
     Dosage: 75 MICROGRAM
     Route: 065
  11. DIFLUCAN [Concomitant]
     Dosage: 400 MILLIGRAM
     Route: 065
  12. GABAPENTIN [Concomitant]
     Dosage: 900
     Route: 065
  13. RAMIPRIL [Concomitant]
     Dosage: 1000 MILLIGRAM
     Route: 065
  14. VIDAZA [Suspect]
     Indication: ACUTE MYELOID LEUKAEMIA
     Dosage: 119.625 MILLIGRAM
     Route: 041
     Dates: start: 20091128, end: 20091226
  15. VIDAZA [Suspect]
     Dosage: 115.5 MILLIGRAM
     Route: 058
     Dates: start: 20100409, end: 20100413
  16. TORSEMIDE [Concomitant]
     Dosage: 10 MILLIGRAM
     Route: 065
  17. PANTOPRAZOLE [Concomitant]
     Dosage: 40
     Route: 065
  18. METOPROLOL SUCCINATE [Concomitant]
     Route: 065
  19. DAUNORUBICIN HCL [Concomitant]
     Route: 041
  20. PANTOPRAZOLE [Concomitant]
     Dosage: 20 DROPS
     Route: 065
     Dates: start: 20100619
  21. VIDAZA [Suspect]
     Dosage: 117 MILLIGRAM
     Route: 058
     Dates: start: 20100216, end: 20100220

REACTIONS (34)
  - ESCHERICHIA BACTERAEMIA [None]
  - OEDEMA PERIPHERAL [None]
  - PYREXIA [None]
  - PETECHIAE [None]
  - HYPOTENSION [None]
  - DECREASED APPETITE [None]
  - CONSTIPATION [None]
  - ANGIOEDEMA [None]
  - THROMBOPHLEBITIS [None]
  - BRADYCARDIA [None]
  - DIARRHOEA [None]
  - CHEST PAIN [None]
  - DYSPEPSIA [None]
  - ABDOMINAL PAIN [None]
  - INJECTION SITE ERYTHEMA [None]
  - VOMITING [None]
  - NEUTROPENIA [None]
  - THROMBOCYTOPENIA [None]
  - DRY MOUTH [None]
  - EYE PAIN [None]
  - CHILLS [None]
  - FOLLICULITIS [None]
  - ENTEROCOLITIS INFECTIOUS [None]
  - LEUKOPENIA [None]
  - NAUSEA [None]
  - RHINITIS [None]
  - ARRHYTHMIA [None]
  - NEUTROPENIC SEPSIS [None]
  - TACHYCARDIA [None]
  - HAEMORRHOIDS [None]
  - PNEUMONIA [None]
  - RASH [None]
  - DYSPNOEA [None]
  - FATIGUE [None]
